FAERS Safety Report 4953291-2 (Version None)
Quarter: 2006Q1

REPORT INFORMATION
  Report Type: 
  Country: None (occurrence: None)
  Receive Date: 20060324
  Receipt Date: 20060314
  Transmission Date: 20060701
  Serious: Yes (Death)
  Sender: FDA-Public Use
  Company Number: DE-JNJFOC-20060204367

PATIENT
  Sex: Male
  Weight: 60 kg

DRUGS (3)
  1. DURAGESIC-100 [Suspect]
     Route: 062
  2. PASPERTIN [Concomitant]
     Route: 048
  3. METAMIZOL [Concomitant]
     Route: 048

REACTIONS (4)
  - NAUSEA [None]
  - NEOPLASM MALIGNANT [None]
  - SOMNOLENCE [None]
  - THERAPEUTIC REACTION TIME DECREASED [None]
